FAERS Safety Report 6122398-9 (Version None)
Quarter: 2009Q1

REPORT INFORMATION
  Report Type: 
  Country: None (occurrence: None)
  Receive Date: 20090318
  Receipt Date: 20090213
  Transmission Date: 20090719
  Serious: No
  Sender: FDA-Public Use
  Company Number: US-ASTRAZENECA-2009UW04213

PATIENT
  Age: 35 Year
  Sex: Female

DRUGS (1)
  1. SYMBICORT [Suspect]
     Dosage: 160 UG 2 INHALATIONS
     Route: 055
     Dates: start: 20071218, end: 20081101

REACTIONS (2)
  - FATIGUE [None]
  - SOMNOLENCE [None]
